FAERS Safety Report 8776068 (Version 2)
Quarter: 2013Q1

REPORT INFORMATION
  Report Type: Report from Study
  Country: FR (occurrence: FR)
  Receive Date: 20120910
  Receipt Date: 20130108
  Transmission Date: 20140127
  Serious: Yes (Other)
  Sender: FDA-Public Use
  Company Number: FR-ACTELION-A-CH2007-16595

PATIENT
  Age: 4 Year
  Sex: Female
  Weight: 24 kg

DRUGS (1)
  1. ZAVESCA [Suspect]
     Indication: NIEMANN-PICK DISEASE
     Dosage: 80 MG, TID
     Route: 048
     Dates: start: 20061020

REACTIONS (4)
  - Diarrhoea [Recovered/Resolved with Sequelae]
  - Weight decreased [Recovered/Resolved]
  - Growth retardation [Unknown]
  - Asthenia [Recovered/Resolved]
